FAERS Safety Report 20177465 (Version 1)
Quarter: 2021Q4

REPORT INFORMATION
  Report Type: Spontaneous
  Country: US (occurrence: None)
  Receive Date: 20211212
  Receipt Date: 20211212
  Transmission Date: 20220303
  Serious: Yes (Other)
  Sender: FDA-Public Use
  Company Number: None

PATIENT
  Age: 82 Year
  Sex: Male
  Weight: 60.75 kg

DRUGS (4)
  1. NITROGLYCERIN LINGUAL [Suspect]
     Active Substance: NITROGLYCERIN
     Indication: Angina pectoris
     Dosage: OTHER QUANTITY : 100 TABLET(S);?FREQUENCY : AS NEEDED;?
     Route: 060
     Dates: start: 20211210, end: 20211212
  2. ATORVASTATIN [Concomitant]
     Active Substance: ATORVASTATIN
  3. ASPIRIN [Concomitant]
     Active Substance: ASPIRIN
  4. COENZYME Q10 [Concomitant]
     Active Substance: DIETARY SUPPLEMENT\UBIDECARENONE

REACTIONS (2)
  - Product packaging difficult to open [None]
  - Product closure issue [None]

NARRATIVE: CASE EVENT DATE: 20211210
